FAERS Safety Report 19194533 (Version 1)
Quarter: 2021Q2

REPORT INFORMATION
  Report Type: Spontaneous
  Country: US (occurrence: US)
  Receive Date: 20210429
  Receipt Date: 20210429
  Transmission Date: 20210717
  Serious: No
  Sender: FDA-Public Use
  Company Number: US-009507513-2104USA000619

PATIENT
  Age: 69 Year
  Sex: Male

DRUGS (2)
  1. MARIBAVIR [Concomitant]
     Active Substance: MARIBAVIR
     Indication: CYTOMEGALOVIRUS INFECTION
     Dosage: 200 MG TWICE DAILY, FOR 10 DAYS
     Route: 048
  2. PREVYMIS [Suspect]
     Active Substance: LETERMOVIR
     Indication: CYTOMEGALOVIRUS INFECTION
     Dosage: 720 MG DAILY, FOR 21 DAYS
     Route: 048

REACTIONS (2)
  - Product use in unapproved indication [Unknown]
  - Product use issue [Unknown]
